FAERS Safety Report 6222090-6 (Version None)
Quarter: 2009Q2

REPORT INFORMATION
  Report Type: 
  Country: None (occurrence: None)
  Receive Date: 20090608
  Receipt Date: 20090608
  Transmission Date: 20091009
  Serious: Yes (Other)
  Sender: FDA-Public Use
  Company Number: None

PATIENT
  Age: 59 Year
  Sex: Female
  Weight: 64.4108 kg

DRUGS (1)
  1. CELEBREX [Suspect]
     Dosage: 1 I TIME

REACTIONS (5)
  - DIARRHOEA [None]
  - EYE SWELLING [None]
  - LIP SWELLING [None]
  - NO THERAPEUTIC RESPONSE [None]
  - URTICARIA [None]
